FAERS Safety Report 18288873 (Version 3)
Quarter: 2020Q4

REPORT INFORMATION
  Report Type: Spontaneous
  Country: US (occurrence: US)
  Receive Date: 20200921
  Receipt Date: 20201103
  Transmission Date: 20210113
  Serious: Yes (Other)
  Sender: FDA-Public Use
  Company Number: US-AMGEN-USASP2020148626

PATIENT
  Age: 83 Year
  Sex: Female
  Weight: 57.14 kg

DRUGS (1)
  1. PROLIA [Suspect]
     Active Substance: DENOSUMAB
     Indication: OSTEOPOROSIS POSTMENOPAUSAL
     Dosage: UNK UNK, Q6MO
     Route: 065
     Dates: start: 20190531

REACTIONS (10)
  - Pain in jaw [Unknown]
  - Trichorrhexis [Unknown]
  - Productive cough [Unknown]
  - Dental caries [Unknown]
  - Vocal cord paralysis [Unknown]
  - Tooth extraction [Unknown]
  - Alopecia [Unknown]
  - Exostosis of jaw [Unknown]
  - Skin ulcer [Unknown]
  - Dysphonia [Unknown]

NARRATIVE: CASE EVENT DATE: 202007
